FAERS Safety Report 21440459 (Version 1)
Quarter: 2022Q4

REPORT INFORMATION
  Report Type: Spontaneous
  Country: US (occurrence: US)
  Receive Date: 20221011
  Receipt Date: 20221011
  Transmission Date: 20230113
  Serious: Yes (Other)
  Sender: FDA-Public Use
  Company Number: US-AMNEAL PHARMACEUTICALS-2022-AMRX-02623

PATIENT
  Sex: Male
  Weight: 31 kg

DRUGS (4)
  1. LIORESAL [Suspect]
     Active Substance: BACLOFEN
     Indication: Dystonia
     Dosage: UNK
  2. LIORESAL [Suspect]
     Active Substance: BACLOFEN
     Indication: Cerebral palsy
     Dosage: 200 ?G, \DAY
     Route: 037
  3. LIORESAL [Suspect]
     Active Substance: BACLOFEN
     Indication: Dystonia
     Dosage: 100 ?G, \DAY
     Route: 037
     Dates: start: 20220426
  4. LIORESAL [Suspect]
     Active Substance: BACLOFEN
     Indication: Cerebral palsy

REACTIONS (1)
  - Therapeutic response decreased [Unknown]
